FAERS Safety Report 13894133 (Version 1)
Quarter: 2017Q3

REPORT INFORMATION
  Report Type: Spontaneous
  Country: US (occurrence: None)
  Receive Date: 20170816
  Receipt Date: 20170816
  Transmission Date: 20171127
  Serious: Yes (Other)
  Sender: FDA-Public Use
  Company Number: None

PATIENT
  Age: 27 Year
  Sex: Female
  Weight: 57.88 kg

DRUGS (5)
  1. NEXPLANON [Concomitant]
     Active Substance: ETONOGESTREL
  2. VITAMIN E [Concomitant]
     Active Substance: .ALPHA.-TOCOPHEROL
  3. DEPO-PROVERA [Suspect]
     Active Substance: MEDROXYPROGESTERONE ACETATE
     Indication: CONTRACEPTION
     Dosage: 150 MG, Q12-13 WEEKS, DEEP IM LEFT DELTOID
     Route: 030
     Dates: start: 20160922, end: 20170323
  4. MULTIVITAMIN WITH FOLIC ACID [Concomitant]
  5. CLOTRIMAZOLE. [Concomitant]
     Active Substance: CLOTRIMAZOLE

REACTIONS (1)
  - Pregnancy with implant contraceptive [None]

NARRATIVE: CASE EVENT DATE: 20170712
